FAERS Safety Report 6602215-0 (Version None)
Quarter: 2010Q1

REPORT INFORMATION
  Report Type: 
  Country: None (occurrence: None)
  Receive Date: 20100218
  Receipt Date: 20100205
  Transmission Date: 20100710
  Serious: Yes (Death, Hospitalization, Other)
  Sender: FDA-Public Use
  Company Number: A-US2009-32277

PATIENT
  Age: 66 Year
  Sex: Male
  Weight: 142.9 kg

DRUGS (1)
  1. TRACLEER [Suspect]
     Indication: PULMONARY ARTERIAL HYPERTENSION
     Dosage: 62.5 MG, BID, ORAL
     Route: 048
     Dates: start: 20090923, end: 20091223

REACTIONS (10)
  - ANAEMIA [None]
  - BLOOD GLUCOSE DECREASED [None]
  - CARDIAC FAILURE ACUTE [None]
  - CONFUSIONAL STATE [None]
  - LACTIC ACIDOSIS [None]
  - LOCALISED OEDEMA [None]
  - MYOCARDIAL INFARCTION [None]
  - RENAL FAILURE ACUTE [None]
  - RESPIRATORY ARREST [None]
  - TACHYCARDIA [None]
